FAERS Safety Report 5131359-8 (Version None)
Quarter: 2006Q4

REPORT INFORMATION
  Report Type: 
  Country: None (occurrence: None)
  Receive Date: 20061016
  Receipt Date: 20061005
  Transmission Date: 20070319
  Serious: Yes (Hospitalization)
  Sender: FDA-Public Use
  Company Number: 236532K06USA

PATIENT
  Age: 41 Year
  Sex: Male

DRUGS (3)
  1. REBIF [Suspect]
     Indication: MULTIPLE SCLEROSIS
     Dosage: 44 MCG, 3 IN 1 WEEKS, SUBCUTANEOUS
     Route: 058
     Dates: start: 20060803
  2. DILANTIN [Suspect]
  3. FLOMAX (MORNIFLUMATE) [Concomitant]

REACTIONS (4)
  - APPENDICITIS [None]
  - ASTHENIA [None]
  - DRUG INTERACTION [None]
  - HAEMORRHAGE [None]
